FAERS Safety Report 8894338 (Version 1)
Quarter: 2012Q4

REPORT INFORMATION
  Report Type: 
  Country: US (occurrence: US)
  Receive Date: 20121108
  Receipt Date: 20121108
  Transmission Date: 20130627
  Serious: No
  Sender: FDA-Public Use
  Company Number: US-BIOGENIDEC-2012BI049174

PATIENT
  Age: 71 Year
  Sex: Female

DRUGS (2)
  1. TYSABRI [Suspect]
     Indication: MULTIPLE SCLEROSIS
     Route: 042
     Dates: start: 20070720, end: 20110622
  2. TYSABRI [Suspect]
     Indication: MULTIPLE SCLEROSIS
     Route: 042
     Dates: start: 20111205

REACTIONS (6)
  - Multiple allergies [Recovered/Resolved]
  - Hyperhidrosis [Recovered/Resolved]
  - Depression [Recovered/Resolved]
  - Blood glucose increased [Recovered/Resolved]
  - Asthenia [Recovered/Resolved]
  - Herpes zoster [Recovered/Resolved]
